FAERS Safety Report 6106416-X (Version None)
Quarter: 2009Q1

REPORT INFORMATION
  Report Type: 
  Country: None (occurrence: None)
  Receive Date: 20090306
  Receipt Date: 20090303
  Transmission Date: 20090719
  Serious: Yes (Hospitalization)
  Sender: FDA-Public Use
  Company Number: DE-B.I. PHARMACEUTICALS,INC./RIDGEFIELD-2009-DE-02006DE

PATIENT
  Sex: Female
  Weight: 65 kg

DRUGS (2)
  1. AGGRENOX [Suspect]
     Indication: CEREBROVASCULAR ACCIDENT
     Dosage: 2ANZ
     Route: 048
     Dates: start: 20030101, end: 20080101
  2. AGGRENOX [Suspect]
     Indication: TRANSIENT ISCHAEMIC ATTACK

REACTIONS (8)
  - CEREBRAL CALCIFICATION [None]
  - DEMENTIA ALZHEIMER'S TYPE [None]
  - DIZZINESS [None]
  - ENCEPHALOPATHY [None]
  - HEMIPARESIS [None]
  - HYPONATRAEMIA [None]
  - NAUSEA [None]
  - VOMITING [None]
